FAERS Safety Report 4994754-3 (Version None)
Quarter: 2006Q1

REPORT INFORMATION
  Report Type: 
  Country: None (occurrence: None)
  Receive Date: 20060313
  Receipt Date: 20050503
  Transmission Date: 20060701
  Serious: Yes (Hospitalization, Other)
  Sender: FDA-Public Use
  Company Number: PHEH2005US04897

PATIENT
  Age: 20 Year
  Sex: Female

DRUGS (2)
  1. TRILEPTAL [Suspect]
     Indication: CONVULSION
     Dates: start: 20050325, end: 20050413
  2. NSAID'S (NO INGREDIENTS/SUBSTANCES) [Suspect]

REACTIONS (24)
  - AGRANULOCYTOSIS [None]
  - ALANINE AMINOTRANSFERASE INCREASED [None]
  - ANAEMIA [None]
  - ASPARTATE AMINOTRANSFERASE INCREASED [None]
  - BLOOD AMYLASE INCREASED [None]
  - BLOOD CREATININE INCREASED [None]
  - COORDINATION ABNORMAL [None]
  - DEHYDRATION [None]
  - DIPLOPIA [None]
  - FLUSHING [None]
  - HAEMOGLOBIN DECREASED [None]
  - HEPATITIS [None]
  - HYPERSENSITIVITY [None]
  - LIPASE INCREASED [None]
  - LYMPHOPENIA [None]
  - NEUTROPHIL COUNT DECREASED [None]
  - PANCREATITIS [None]
  - PANCYTOPENIA [None]
  - PULMONARY OEDEMA [None]
  - PYREXIA [None]
  - RED BLOOD CELL COUNT DECREASED [None]
  - RENAL FAILURE ACUTE [None]
  - VOMITING [None]
  - WHITE BLOOD CELL COUNT DECREASED [None]
